FAERS Safety Report 5545455-4 (Version None)
Quarter: 2007Q4

REPORT INFORMATION
  Report Type: 
  Country: None (occurrence: None)
  Receive Date: 20071211
  Receipt Date: 20071129
  Transmission Date: 20080405
  Serious: Yes (Hospitalization, Other)
  Sender: FDA-Public Use
  Company Number: JP-NOVOPROD-269224

PATIENT
  Sex: Male
  Weight: 42 kg

DRUGS (7)
  1. NOVOLIN R [Suspect]
     Indication: TYPE 1 DIABETES MELLITUS
     Dosage: 18-26 IU
     Route: 058
     Dates: start: 20071017, end: 20071025
  2. NOVOLIN N [Suspect]
     Indication: TYPE 1 DIABETES MELLITUS
     Dosage: 6 IU, QD
     Route: 058
     Dates: start: 20071017, end: 20071018
  3. NOVORAPID CHU FLEXPEN [Suspect]
     Indication: TYPE 1 DIABETES MELLITUS
     Dosage: 26-48 IU
     Route: 058
     Dates: start: 20071026
  4. LANTUS [Concomitant]
     Indication: TYPE 1 DIABETES MELLITUS
     Dosage: 6 IU, QD
     Route: 058
     Dates: start: 20071019
  5. METHYCOBAL                         /00324901/ [Concomitant]
     Dosage: UNK, UNK
     Route: 048
     Dates: start: 20071001
  6. MONEDAX [Concomitant]
     Indication: DIABETIC NEUROPATHY
     Dosage: 150 MG, QD
     Route: 048
     Dates: start: 20071023
  7. PASETOCIN                          /00249601/ [Concomitant]
     Indication: DENTAL CARIES
     Dosage: 750 MG, QD
     Route: 048
     Dates: start: 20071031

REACTIONS (4)
  - DIABETIC KETOACIDOSIS [None]
  - ERYTHEMA [None]
  - HEPATIC FUNCTION ABNORMAL [None]
  - RASH [None]
